FAERS Safety Report 14754396 (Version 1)
Quarter: 2018Q2

REPORT INFORMATION
  Report Type: Spontaneous
  Country: CA (occurrence: CA)
  Receive Date: 20180412
  Receipt Date: 20180412
  Transmission Date: 20180711
  Serious: Yes (Disabling)
  Sender: FDA-Public Use
  Company Number: CA-TEVA-2018-CA-879041

PATIENT
  Age: 61 Year
  Sex: Female
  Weight: 30.87 kg

DRUGS (1)
  1. ACT LEVOFLOXACIN [Suspect]
     Active Substance: LEVOFLOXACIN
     Indication: PNEUMONIA VIRAL
     Route: 048

REACTIONS (9)
  - Arthralgia [Not Recovered/Not Resolved]
  - Arthritis [Not Recovered/Not Resolved]
  - Rash [Not Recovered/Not Resolved]
  - Impaired healing [Not Recovered/Not Resolved]
  - General symptom [Not Recovered/Not Resolved]
  - Spondylitis [Not Recovered/Not Resolved]
  - Joint lock [Not Recovered/Not Resolved]
  - Tendonitis [Not Recovered/Not Resolved]
  - Urticaria [Not Recovered/Not Resolved]
